FAERS Safety Report 6897690-0 (Version None)
Quarter: 2010Q3

REPORT INFORMATION
  Report Type: 
  Country: None (occurrence: None)
  Receive Date: 20100802
  Receipt Date: 20070707
  Transmission Date: 20110219
  Serious: Yes (Other)
  Sender: FDA-Public Use
  Company Number: US-PFIZER INC-2007023369

PATIENT
  Sex: Female
  Weight: 250 kg

DRUGS (7)
  1. LYRICA [Suspect]
     Indication: NEURALGIA
     Dates: start: 20060901
  2. TRICOR [Concomitant]
  3. WELLBUTRIN [Concomitant]
  4. OMEPRAZOLE [Concomitant]
  5. DIOVAN [Concomitant]
  6. ATENOLOL [Concomitant]
  7. INSULIN [Concomitant]

REACTIONS (4)
  - HIGH DENSITY LIPOPROTEIN DECREASED [None]
  - INCONTINENCE [None]
  - UNEVALUABLE EVENT [None]
  - WEIGHT INCREASED [None]
